FAERS Safety Report 6242870-0 (Version None)
Quarter: 2009Q2

REPORT INFORMATION
  Report Type: 
  Country: None (occurrence: None)
  Receive Date: 20090624
  Receipt Date: 20090619
  Transmission Date: 20091009
  Serious: Yes (Other)
  Sender: FDA-Public Use
  Company Number: D0059197A

PATIENT
  Sex: Female
  Weight: 70 kg

DRUGS (3)
  1. AVANDIA [Suspect]
     Dosage: 4MG PER DAY
     Route: 048
     Dates: start: 20030101
  2. GLIBENCLAMIDE [Concomitant]
     Dosage: 10.5MG PER DAY
     Route: 065
  3. LOCOL [Concomitant]
     Dosage: 40MG PER DAY
     Route: 065

REACTIONS (3)
  - CLAVICLE FRACTURE [None]
  - FALL [None]
  - RIB FRACTURE [None]
